FAERS Safety Report 7853037-4 (Version None)
Quarter: 2011Q4

REPORT INFORMATION
  Report Type: 
  Country: None (occurrence: None)
  Receive Date: 20111026
  Receipt Date: 20111014
  Transmission Date: 20120403
  Serious: Yes (Hospitalization, Other)
  Sender: FDA-Public Use
  Company Number: US-BAYER-201034747NA

PATIENT
  Age: 21 Year
  Sex: Female
  Weight: 45.351 kg

DRUGS (14)
  1. ZOFRAN [Concomitant]
     Indication: NAUSEA
     Dosage: 4 MG, UNK
     Route: 048
     Dates: start: 20060825
  2. AMITRIPTYLINE HCL [Concomitant]
  3. ONDANSETRON [Concomitant]
     Dosage: 4 MG, UNK
     Route: 048
     Dates: start: 20070924
  4. NORGESTIMATE AND ETHINYL ESTRADIOL [Concomitant]
     Dosage: UNK
     Dates: start: 20070212
  5. YAZ [Suspect]
     Indication: PRODUCT USED FOR UNKNOWN INDICATION
     Route: 048
  6. DROSPIRENONE AND ETHINYL ESTRADIOL [Suspect]
     Route: 048
  7. IBUPROFEN [Concomitant]
     Dosage: 800 MG, TID
     Route: 048
     Dates: start: 20050101
  8. NEXIUM [Concomitant]
     Indication: GASTRIC PH DECREASED
     Dosage: 40 MG, QD
     Route: 048
     Dates: start: 20060802
  9. YASMIN [Suspect]
     Dosage: UNK
     Dates: start: 20041201, end: 20051001
  10. ORTHO TRI-CYCLEN [Concomitant]
  11. TRINESTA [Concomitant]
  12. ZOFRAN [Concomitant]
     Indication: VOMITING
  13. LEXAPRO [Concomitant]
     Dosage: 10 MG, UNK
     Route: 048
     Dates: start: 20060919
  14. PRILOSEC [Concomitant]
     Dosage: UNK
     Dates: start: 20070212

REACTIONS (5)
  - VOMITING [None]
  - CHOLECYSTITIS CHRONIC [None]
  - GALLBLADDER DISORDER [None]
  - GALLBLADDER POLYP [None]
  - NAUSEA [None]
